FAERS Safety Report 24591891 (Version 1)
Quarter: 2024Q4

REPORT INFORMATION
  Report Type: Spontaneous
  Country: US (occurrence: US)
  Receive Date: 20241108
  Receipt Date: 20241108
  Transmission Date: 20250114
  Serious: No
  Sender: Norvium Bioscience
  Company Number: US-Norvium Bioscience LLC-000063

PATIENT
  Age: 68 Year

DRUGS (3)
  1. SIMVASTATIN [Suspect]
     Active Substance: SIMVASTATIN
     Indication: Product used for unknown indication
     Dosage: CRESTOR, SIMVASTATIN AND ATORVASTATIN 40MGS
  2. CRESTOR [Suspect]
     Active Substance: ROSUVASTATIN CALCIUM
     Indication: Product used for unknown indication
     Dosage: CRESTOR, SIMVASTATIN AND ATORVASTATIN 40MGS
  3. ATORVASTATIN [Suspect]
     Active Substance: ATORVASTATIN
     Indication: Product used for unknown indication
     Dosage: CRESTOR, SIMVASTATIN AND ATORVASTATIN 40MGS

REACTIONS (1)
  - Palpitations [Unknown]
